FAERS Safety Report 4613625-5 (Version None)
Quarter: 2005Q1

REPORT INFORMATION
  Report Type: 
  Country: None (occurrence: None)
  Receive Date: 20050315
  Receipt Date: 20030724
  Transmission Date: 20050727
  Serious: Yes (Hospitalization)
  Sender: FDA-Public Use
  Company Number: 5620

PATIENT
  Age: 51 Year
  Sex: Male

DRUGS (15)
  1. CYTARABINE [Suspect]
     Indication: ACUTE LYMPHOCYTIC LEUKAEMIA
     Dosage: 580 MG TOTAL IV
     Route: 042
     Dates: start: 20030621, end: 20030621
  2. MERCAPTOPURINE [Suspect]
     Dosage: 100 MG ALT?_DAYS/150 MG ALT_DAYS
     Route: 042
  3. CYCLOPHOSPHAMIDE [Suspect]
     Indication: ACUTE LYMPHOCYTIC LEUKAEMIA
     Dosage: 3750 MG TOTAL IV
     Route: 042
     Dates: start: 20030604
  4. AMPHOTERICIN B [Concomitant]
  5. SUPHAMETHOXAZOLE TRIMETHOPRIM [Concomitant]
  6. METHOTREXATE [Concomitant]
  7. GENTAMICIN [Concomitant]
  8. GRANISETRON [Concomitant]
  9. METOCLOPRAMIDE [Concomitant]
  10. ZOPICLONE [Concomitant]
  11. CEFTAZIDIME [Concomitant]
  12. VANCOMYCIN [Concomitant]
  13. ACYCLOVIR [Concomitant]
  14. CYCLIZINE [Concomitant]
  15. PIPERACILLIN TAZOBACTAM [Concomitant]

REACTIONS (6)
  - AGITATION [None]
  - AMNESIA [None]
  - CONFUSIONAL STATE [None]
  - DISORIENTATION [None]
  - FEBRILE NEUTROPENIA [None]
  - HEADACHE [None]
